FAERS Safety Report 12184199 (Version 2)
Quarter: 2016Q1

REPORT INFORMATION
  Report Type: Report from Study
  Country: US (occurrence: US)
  Receive Date: 20160316
  Receipt Date: 20160316
  Transmission Date: 20160526
  Serious: Yes (Other)
  Sender: FDA-Public Use
  Company Number: US-BRISTOL-MYERS SQUIBB COMPANY-BMS-2016-016799

PATIENT
  Age: 36 Year
  Sex: Female
  Weight: 49.8 kg

DRUGS (2)
  1. BELATACEPT [Suspect]
     Active Substance: BELATACEPT
     Indication: RENAL TRANSPLANT
     Dosage: 250 MG, UNK
     Route: 065
     Dates: start: 20120608
  2. ATGAM [Concomitant]
     Active Substance: EQUINE THYMOCYTE IMMUNE GLOBULIN
     Indication: PRODUCT USED FOR UNKNOWN INDICATION
     Dosage: 210 MG, UNK
     Route: 065
     Dates: start: 20090707, end: 20090709

REACTIONS (2)
  - Graft loss [Unknown]
  - Fibrosis [Unknown]

NARRATIVE: CASE EVENT DATE: 20140728
